FAERS Safety Report 19362886 (Version 1)
Quarter: 2021Q2

REPORT INFORMATION
  Report Type: Report from Study
  Country: IT (occurrence: IT)
  Receive Date: 20210603
  Receipt Date: 20210603
  Transmission Date: 20210717
  Serious: Yes (Other)
  Sender: FDA-Public Use
  Company Number: IT-TEVA-2021-IT-1917128

PATIENT
  Age: 81 Year
  Sex: Male

DRUGS (13)
  1. CARDIOASPIRIN 100 MG COMPRESSE GASTRORESISTENTI [Concomitant]
     Active Substance: ASPIRIN
  2. DIAMICRON 60 MG COMPRESSE A RILASCIO MODIFICATO [Concomitant]
  3. ESKIM 1000 MG CAPSULE MOLLI [Concomitant]
  4. PREDNISONE. [Suspect]
     Active Substance: PREDNISONE
     Indication: CORONAVIRUS INFECTION
     Dosage: 25MG
     Route: 048
     Dates: start: 20210318, end: 20210328
  5. ACICLOVIR ALMUS 400MG/5ML SOSPENSIONE ORALE [Concomitant]
  6. SEQUACOR 2,5 MG COMPRESSE RIVESTITE CON FILM [Concomitant]
     Active Substance: BISOPROLOL FUMARATE
  7. TENOFOVIR DISOPROXIL [Concomitant]
     Active Substance: TENOFOVIR DISOPROXIL
  8. CRESTOR 10 MG COMPRESSE RIVESTITE CON FILM [Concomitant]
  9. AVODART [Concomitant]
     Active Substance: DUTASTERIDE
  10. METFORMIN [Concomitant]
     Active Substance: METFORMIN HYDROCHLORIDE
  11. VILDAGLIPTIN [Concomitant]
     Active Substance: VILDAGLIPTIN
  12. FOLINA 5 MG CAPSULE MOLLI [Concomitant]
  13. GLUCOPHAGE [Concomitant]
     Active Substance: METFORMIN HYDROCHLORIDE

REACTIONS (3)
  - Sopor [Unknown]
  - Confusional state [Unknown]
  - Encephalopathy [Unknown]

NARRATIVE: CASE EVENT DATE: 20210406
